FAERS Safety Report 21287650 (Version 2)
Quarter: 2022Q4

REPORT INFORMATION
  Report Type: Report from Study
  Country: US (occurrence: US)
  Receive Date: 20220902
  Receipt Date: 20221115
  Transmission Date: 20230113
  Serious: Yes (Hospitalization, Other)
  Sender: FDA-Public Use
  Company Number: US-ABBVIE-22K-163-4524909-00

PATIENT
  Age: 61 Year
  Sex: Female

DRUGS (1)
  1. VENCLEXTA [Suspect]
     Active Substance: VENETOCLAX
     Indication: Chronic lymphocytic leukaemia
     Dosage: FORM STRENGTH: 300 MILLIGRAM
     Route: 048
     Dates: start: 201904

REACTIONS (3)
  - Knee operation [Unknown]
  - Hypotension [Unknown]
  - Near death experience [Unknown]

NARRATIVE: CASE EVENT DATE: 20220801
